FAERS Safety Report 7090375-X (Version None)
Quarter: 2010Q4

REPORT INFORMATION
  Report Type: 
  Country: None (occurrence: None)
  Receive Date: 20101109
  Receipt Date: 20101102
  Transmission Date: 20110411
  Serious: Yes (Death)
  Sender: FDA-Public Use
  Company Number: PHFR2010GB05161

PATIENT

DRUGS (1)
  1. RIVASTIGMINE [Suspect]

REACTIONS (1)
  - DEATH [None]
